FAERS Safety Report 8930128 (Version 2)
Quarter: 2012Q4

REPORT INFORMATION
  Report Type: Report from Study
  Country: CA (occurrence: CA)
  Receive Date: 20121128
  Receipt Date: 20121216
  Transmission Date: 20130627
  Serious: Yes (Hospitalization)
  Sender: FDA-Public Use
  Company Number: CA-BRISTOL-MYERS SQUIBB COMPANY-17064361

PATIENT
  Age: 53 Year
  Sex: Female
  Weight: 55 kg

DRUGS (10)
  1. ERBITUX [Suspect]
     Indication: HEAD AND NECK CANCER
     Dosage: Reg1:21Aug12-21Aug12.
Reg2:250mg/m2,on day1,day8 nad day15 of each cycle-28Aug2012-ong.
     Route: 042
     Dates: start: 20120821, end: 20121016
  2. CARBOPLATIN [Suspect]
     Indication: HEAD AND NECK CANCER
     Dosage: 1DF:5AUC on D1
Reg2:600mg,D1,Last dose dt:02Oct12.
     Route: 042
     Dates: start: 20120821
  3. 5-FLUOROURACIL [Suspect]
     Indication: HEAD AND NECK CANCER
     Dosage: Reg2:4720mg,D1-4. Last dose dt:02Oct12.
     Route: 042
     Dates: start: 20120821
  4. CITALOPRAM [Concomitant]
  5. ESOMEPRAZOLE [Concomitant]
     Indication: GASTROOESOPHAGEAL REFLUX DISEASE
  6. PREDNISONE [Concomitant]
  7. MYCOSTATIN [Concomitant]
     Indication: ANTIFUNGAL TREATMENT
  8. IMODIUM [Concomitant]
     Indication: DIARRHOEA
  9. STEMETIL [Concomitant]
     Indication: NAUSEA
  10. STEMETIL [Concomitant]
     Indication: VERTIGO

REACTIONS (3)
  - Febrile neutropenia [Recovered/Resolved]
  - Anaemia [Recovered/Resolved]
  - Platelet count decreased [Recovered/Resolved]
